FAERS Safety Report 7491325-4 (Version None)
Quarter: 2011Q2

REPORT INFORMATION
  Report Type: 
  Country: None (occurrence: None)
  Receive Date: 20110519
  Receipt Date: 20110513
  Transmission Date: 20111010
  Serious: Yes (Disabling)
  Sender: FDA-Public Use
  Company Number: B0720251A

PATIENT
  Age: 57 Year
  Sex: Male

DRUGS (3)
  1. ASPIRIN [Concomitant]
     Indication: PROPHYLAXIS
     Route: 048
     Dates: start: 20080313
  2. DUODART [Suspect]
     Route: 048
     Dates: start: 20110122, end: 20110314
  3. SIMVASTATIN [Concomitant]
     Route: 048
     Dates: start: 20080313

REACTIONS (5)
  - DYSPNOEA [None]
  - EPIGASTRIC DISCOMFORT [None]
  - LOSS OF LIBIDO [None]
  - EJACULATION FAILURE [None]
  - WEIGHT INCREASED [None]
